FAERS Safety Report 7545320-7 (Version None)
Quarter: 2011Q2

REPORT INFORMATION
  Report Type: 
  Country: None (occurrence: None)
  Receive Date: 20110613
  Receipt Date: 20110613
  Transmission Date: 20111010
  Serious: Yes (Other)
  Sender: FDA-Public Use
  Company Number: None

PATIENT
  Age: 48 Year
  Sex: Female
  Weight: 47.6277 kg

DRUGS (2)
  1. SIMVASTATIN [Suspect]
     Indication: BLOOD TRIGLYCERIDES INCREASED
     Dosage: ONCE DAILY PO
     Route: 048
     Dates: start: 20100101, end: 20110602
  2. SIMVASTATIN [Suspect]
     Indication: BLOOD CHOLESTEROL INCREASED
     Dosage: ONCE DAILY PO
     Route: 048
     Dates: start: 20100101, end: 20110602

REACTIONS (6)
  - RASH MACULAR [None]
  - BURNING SENSATION [None]
  - MYALGIA [None]
  - FATIGUE [None]
  - CONTUSION [None]
  - MUSCLE STRAIN [None]
